FAERS Safety Report 6920161-X (Version None)
Quarter: 2010Q3

REPORT INFORMATION
  Report Type: 
  Country: None (occurrence: None)
  Receive Date: 20100809
  Receipt Date: 20100714
  Transmission Date: 20110219
  Serious: Yes (Other)
  Sender: FDA-Public Use
  Company Number: AU-SOLVAY-00310004345

PATIENT
  Age: 32 Year
  Sex: Female

DRUGS (5)
  1. LUVOX [Suspect]
     Indication: PRODUCT USED FOR UNKNOWN INDICATION
     Dates: start: 20081201, end: 20091231
  2. EFFEXOR [Suspect]
     Indication: PRODUCT USED FOR UNKNOWN INDICATION
     Dosage: 75 MILLIGRAM(S)
     Dates: start: 20100113
  3. ZOLPIDEM TARTRATE [Suspect]
     Dates: start: 20030601, end: 20090101
  4. ZOLPIDEM TARTRATE [Suspect]
     Dates: start: 20090101, end: 20100101
  5. ZOLPIDEM TARTRATE [Suspect]
     Dates: start: 20100101

REACTIONS (2)
  - CONVULSION [None]
  - DRUG WITHDRAWAL CONVULSIONS [None]
